FAERS Safety Report 6899717-9 (Version None)
Quarter: 2010Q3

REPORT INFORMATION
  Report Type: 
  Country: None (occurrence: None)
  Receive Date: 20100708
  Receipt Date: 20090717
  Transmission Date: 20110219
  Serious: Yes (Other)
  Sender: FDA-Public Use
  Company Number: 2009248901

PATIENT
  Age: 18 Year
  Sex: Male
  Weight: 70.3 kg

DRUGS (2)
  1. CHANTIX [Suspect]
     Dosage: FREQUENCY: 2X/DAY, EVERYDAY;, ORAL
     Route: 048
     Dates: start: 20090622, end: 20090629
  2. ADDERALL XR (AMFETAMINE ASPARTATE,AMFETAMINE SULFATE,DEXAMFETAMINE SAC [Concomitant]

REACTIONS (4)
  - AGGRESSION [None]
  - FEELING ABNORMAL [None]
  - MOOD ALTERED [None]
  - NAUSEA [None]
